FAERS Safety Report 6724718-0 (Version None)
Quarter: 2010Q2

REPORT INFORMATION
  Report Type: 
  Country: None (occurrence: None)
  Receive Date: 20100513
  Receipt Date: 20100506
  Transmission Date: 20101027
  Serious: Yes (Other)
  Sender: FDA-Public Use
  Company Number: ZA-MERCK-1003ZAF00018

PATIENT
  Age: 50 Year
  Sex: Male
  Weight: 88 kg

DRUGS (2)
  1. ZETIA [Suspect]
     Indication: TYPE IIA HYPERLIPIDAEMIA
     Route: 048
     Dates: start: 20080909
  2. ROSUVASTATIN CALCIUM [Concomitant]
     Indication: TYPE IIA HYPERLIPIDAEMIA
     Route: 048

REACTIONS (1)
  - VITAMIN D DEFICIENCY [None]
